FAERS Safety Report 16172009 (Version 4)
Quarter: 2020Q1

REPORT INFORMATION
  Report Type: Spontaneous
  Country: US (occurrence: US)
  Receive Date: 20190409
  Receipt Date: 20200306
  Transmission Date: 20200409
  Serious: Yes (Hospitalization, Disabling, Other)
  Sender: FDA-Public Use
  Company Number: US-UNITED THERAPEUTICS-UNT-2019-005942

PATIENT
  Age: 62 Year
  Sex: Female
  Weight: 72.6 kg

DRUGS (19)
  1. WARFARIN [Concomitant]
     Active Substance: WARFARIN
     Indication: PULMONARY EMBOLISM
     Dosage: 2.5 MG, SUN, WED, SAT (TOTAL DAILY DOSE)
     Route: 065
     Dates: start: 20171121, end: 20171121
  2. SYMBICORT [Concomitant]
     Active Substance: BUDESONIDE\FORMOTEROL FUMARATE DIHYDRATE
     Indication: ASTHMA
     Dosage: 4 PUFFS, TOTAL DAILY DOSE
     Route: 065
     Dates: start: 20161026
  3. LASIX [Concomitant]
     Active Substance: FUROSEMIDE
     Indication: OEDEMA
     Dosage: 40 MG, TOTAL DAILY DOSE
     Route: 065
     Dates: start: 20161227
  4. HYDROCORTISONE. [Concomitant]
     Active Substance: HYDROCORTISONE
     Indication: VITILIGO
     Dosage: 1 APPLICATION (TOTAL DAILY DOSE)
     Route: 065
     Dates: start: 20190225
  5. WARFARIN [Concomitant]
     Active Substance: WARFARIN
     Dosage: UNK (TOTAL DAILY DOSE: 5 MG) MON, TUES, SAT
     Route: 065
     Dates: start: 20171221, end: 20190201
  6. ADEMPAS [Suspect]
     Active Substance: RIOCIGUAT
     Dosage: 0.5 MG, TID
     Route: 048
     Dates: start: 20170306
  7. REMODULIN [Suspect]
     Active Substance: TREPROSTINIL
     Indication: PULMONARY ARTERIAL HYPERTENSION
     Dosage: 0.0623 ?G/KG, CONTINUING
     Route: 058
     Dates: start: 20180502
  8. REMODULIN [Suspect]
     Active Substance: TREPROSTINIL
     Dosage: 0.060 ?G/KG, CONTINUOUS
     Route: 058
     Dates: start: 20181114
  9. WARFARIN [Concomitant]
     Active Substance: WARFARIN
     Dosage: 5 MG, MON,TUES, THURS, FRI
     Route: 065
     Dates: start: 20171121, end: 20171121
  10. TYLENOL [Concomitant]
     Active Substance: ACETAMINOPHEN
     Indication: PAIN MANAGEMENT
     Dosage: 1000 MG, PRN (EVERY 6 HOURS) (TOTAL DAILY DOSE)
     Route: 065
     Dates: start: 20170109
  11. LOMOTIL [Concomitant]
     Active Substance: ATROPINE SULFATE\DIPHENOXYLATE HYDROCHLORIDE
     Indication: DIARRHOEA
     Dosage: 5 MG, PRN, EVENY SIX HOURS (TOTAL DAILY DOSE: 5 MG)
     Route: 065
     Dates: start: 20181126
  12. IMODIUM [Concomitant]
     Active Substance: LOPERAMIDE HYDROCHLORIDE
     Indication: DIARRHOEA
     Dosage: 2 MG, PRN, EVERY 6 HOURS (TOTAL DAILY DOSE)
     Route: 065
     Dates: start: 20180429
  13. TRIAMCINOLONE [Concomitant]
     Active Substance: TRIAMCINOLONE
     Indication: VITILIGO
     Dosage: 2 APPLICATION (TOTAL DAILY DOSE)
     Route: 065
     Dates: start: 20190222
  14. REMODULIN [Suspect]
     Active Substance: TREPROSTINIL
     Dosage: 0.002 ?G/KG, CONTINUING
     Route: 058
     Dates: start: 20161222
  15. POTASSIUM CHLORIDE. [Concomitant]
     Active Substance: POTASSIUM CHLORIDE
     Indication: ELECTROLYTE SUBSTITUTION THERAPY
     Dosage: 20 MEQ, UNK (TOTAL DAILY DOSE)
     Route: 065
     Dates: start: 20170109
  16. WARFARIN [Concomitant]
     Active Substance: WARFARIN
     Indication: PULMONARY EMBOLISM
     Dosage: UNK (DAILY DOSE: 2.5 MG) SUN, WED, THURS, FRI
     Route: 065
     Dates: start: 20171221, end: 20190201
  17. ADEMPAS [Suspect]
     Active Substance: RIOCIGUAT
     Indication: PULMONARY ARTERIAL HYPERTENSION
     Dosage: 7.5 MG, TID (TOTAL DAILY DOSE)
     Route: 048
     Dates: start: 20170828
  18. VITAMIN D [Concomitant]
     Active Substance: VITAMIN D NOS
     Indication: SUPPLEMENTATION THERAPY
     Dosage: UNK (TOTAL DAILY DOSE: 1000 UNITS)
     Route: 065
     Dates: start: 20150723
  19. ZOFRAN [Concomitant]
     Active Substance: ONDANSETRON HYDROCHLORIDE
     Indication: NAUSEA
     Dosage: 4 MG, PRN, EVERY 8 HOURS (TOTAL DAILY DOSE)
     Route: 065
     Dates: start: 20170322

REACTIONS (2)
  - Spinal compression fracture [Recovering/Resolving]
  - Fall [Recovered/Resolved with Sequelae]

NARRATIVE: CASE EVENT DATE: 20190331
